FAERS Safety Report 14890557 (Version 2)
Quarter: 2018Q2

REPORT INFORMATION
  Report Type: Report from Study
  Country: AR (occurrence: AR)
  Receive Date: 20180514
  Receipt Date: 20180514
  Transmission Date: 20180711
  Serious: Yes (Other)
  Sender: FDA-Public Use
  Company Number: PHHY2018AR006103

PATIENT
  Sex: Female

DRUGS (3)
  1. DUOTRAV (ALC) [Suspect]
     Active Substance: TIMOLOL MALEATE\TRAVOPROST
     Indication: PRODUCT USED FOR UNKNOWN INDICATION
     Dosage: LEFT EYE
     Route: 065
     Dates: start: 201612
  2. SIMBRINZA [Suspect]
     Active Substance: BRIMONIDINE TARTRATE\BRINZOLAMIDE
     Indication: PRODUCT USED FOR UNKNOWN INDICATION
     Dosage: LEFT EYE
     Route: 065
     Dates: start: 201612
  3. DIABO (GLICLAZIDE) [Suspect]
     Active Substance: GLICLAZIDE
     Indication: PRODUCT USED FOR UNKNOWN INDICATION
     Dosage: UNK
     Route: 065
     Dates: start: 201612, end: 201712

REACTIONS (7)
  - Vision blurred [Unknown]
  - Adverse reaction [Unknown]
  - Glaucoma [Unknown]
  - Intraocular pressure increased [Unknown]
  - Visual impairment [Unknown]
  - Weight decreased [Unknown]
  - Diarrhoea [Unknown]
